FAERS Safety Report 5770457-2 (Version None)
Quarter: 2008Q2

REPORT INFORMATION
  Report Type: 
  Country: None (occurrence: None)
  Receive Date: 20080613
  Receipt Date: 20080501
  Transmission Date: 20081010
  Serious: No
  Sender: FDA-Public Use
  Company Number: US-ABBOTT-08P-163-0449936-00

PATIENT
  Sex: Male
  Weight: 69.916 kg

DRUGS (7)
  1. HUMIRA [Suspect]
     Indication: CROHN'S DISEASE
     Route: 058
     Dates: start: 20080501, end: 20080501
  2. AZATHIOPRINE [Concomitant]
     Indication: CROHN'S DISEASE
     Route: 048
     Dates: start: 20080409
  3. HYOSCYAMINE SULFATE [Concomitant]
     Indication: GASTROINTESTINAL PAIN
     Route: 048
     Dates: start: 20080409
  4. HYOSCYAMINE SULFATE [Concomitant]
     Indication: CROHN'S DISEASE
  5. BUDESONIDE [Concomitant]
     Indication: CROHN'S DISEASE
     Dosage: 3 MG X 3
     Route: 048
     Dates: start: 20080312
  6. MESALAMINE [Concomitant]
     Indication: CROHN'S DISEASE
     Dosage: 400 MG TABLETS - 3 TABS 3 TIMES A DAY
     Route: 048
     Dates: start: 20080312
  7. NATAL CARE [Concomitant]
     Indication: VITAMIN SUPPLEMENTATION
     Route: 048
     Dates: start: 20080312

REACTIONS (4)
  - ACCIDENTAL EXPOSURE [None]
  - HEADACHE [None]
  - INJECTION SITE HAEMORRHAGE [None]
  - INJECTION SITE PAIN [None]
